FAERS Safety Report 12618556 (Version 3)
Quarter: 2016Q4

REPORT INFORMATION
  Report Type: Spontaneous
  Country: US (occurrence: US)
  Receive Date: 20160803
  Receipt Date: 20161102
  Transmission Date: 20170207
  Serious: Yes (Other)
  Sender: FDA-Public Use
  Company Number: US-PFIZER INC-2016365678

PATIENT
  Age: 42 Year
  Sex: Male
  Weight: 85.28 kg

DRUGS (6)
  1. VIAGRA [Suspect]
     Active Substance: SILDENAFIL CITRATE
     Dosage: 100 MG, AS NEEDED (1 TABLET DAILY 1 HOUR BEFORE NEEDED)
     Route: 048
  2. HYDROCODONE/IBUPROFEN [Concomitant]
     Active Substance: HYDROCODONE\IBUPROFEN
     Indication: PAIN
     Dosage: HYDROCODONE BITARTRATE 7.5 MG/IBUPROFEN 200 MG 1 TABLET, EVERY FOUR TO SIX HOURS AS NEED
     Route: 048
     Dates: start: 2012
  3. SOMA [Concomitant]
     Active Substance: CARISOPRODOL
     Indication: PAIN
     Dosage: 350 MG, 4X/DAY
     Route: 048
     Dates: start: 2012
  4. VIAGRA [Suspect]
     Active Substance: SILDENAFIL CITRATE
     Dosage: 50 MG, UNK
     Dates: start: 2016
  5. FENTANYL. [Concomitant]
     Active Substance: FENTANYL
     Indication: PAIN
     Dosage: 100 UG, ONE PATCH EVERY 72 HOURS
     Route: 062
     Dates: start: 2012
  6. VIAGRA [Suspect]
     Active Substance: SILDENAFIL CITRATE
     Indication: ERECTILE DYSFUNCTION
     Dosage: 50 MG ONE TABLET AS NEEDED
     Route: 048
     Dates: start: 2009

REACTIONS (5)
  - Laceration [Not Recovered/Not Resolved]
  - Concussion [Recovering/Resolving]
  - Contusion [Not Recovered/Not Resolved]
  - Road traffic accident [Recovering/Resolving]
  - Drug effect incomplete [Unknown]

NARRATIVE: CASE EVENT DATE: 201607
